FAERS Safety Report 9800996 (Version 2)
Quarter: 2014Q2

REPORT INFORMATION
  Report Type: Spontaneous
  Country: US (occurrence: US)
  Receive Date: 20140107
  Receipt Date: 20140627
  Transmission Date: 20141212
  Serious: Yes (Other)
  Sender: FDA-Public Use
  Company Number: US-PFIZER INC-2014003703

PATIENT
  Age: 63 Year
  Sex: Male
  Weight: 100.68 kg

DRUGS (12)
  1. LYRICA [Suspect]
     Indication: NEURALGIA
     Dosage: 75 MG, 1X/DAY
     Dates: start: 201308
  2. LYRICA [Suspect]
     Indication: NERVE INJURY
  3. LYRICA [Suspect]
     Indication: NERVE INJURY
     Dosage: 150 MG, 3X/DAY
     Route: 048
     Dates: start: 201307
  4. LYRICA [Suspect]
     Indication: MYALGIA
  5. LISINOPRIL [Concomitant]
     Indication: HYPERTENSION
     Dosage: 10 MG, 1X/DAY
  6. CARVEDILOL [Concomitant]
     Indication: HYPERTENSION
     Dosage: 6.25 MG, 3X/DAY
  7. LASIX [Concomitant]
     Indication: HYPERTENSION
     Dosage: UNK
  8. VALIUM [Concomitant]
     Indication: MUSCLE SPASMS
     Dosage: UNK
  9. AMLODIPINE [Concomitant]
     Dosage: 2.5 MG, 1X/DAY
  10. FUROSEMIDE [Concomitant]
     Indication: DIURETIC THERAPY
     Dosage: 40 MG, 2X/DAY
  11. BABY ASPIRIN [Concomitant]
     Dosage: 81 MG, 1X/DAY
  12. CO-Q10 [Concomitant]
     Dosage: 200 MG, DAILY

REACTIONS (10)
  - Blood cholesterol increased [Unknown]
  - Weight decreased [Unknown]
  - Drug ineffective [Recovering/Resolving]
  - Muscle spasms [Recovering/Resolving]
  - Myalgia [Unknown]
  - Panic attack [Unknown]
  - Anxiety [Unknown]
  - Balance disorder [Unknown]
  - Disturbance in attention [Unknown]
  - Irritability [Unknown]
